FAERS Safety Report 24005456 (Version 1)
Quarter: 2024Q2

REPORT INFORMATION
  Report Type: Spontaneous
  Country: IT (occurrence: IT)
  Receive Date: 20240624
  Receipt Date: 20240624
  Transmission Date: 20240716
  Serious: Yes (Hospitalization)
  Sender: FDA-Public Use
  Company Number: None

PATIENT
  Age: 78 Year
  Sex: Male

DRUGS (5)
  1. BEVACIZUMAB [Suspect]
     Active Substance: BEVACIZUMAB
     Indication: Colon cancer
     Dosage: 430 MG EVERY 14 DAYS, CYCLE 1
     Route: 042
     Dates: start: 20240109, end: 20240109
  2. IRINOTECAN HYDROCHLORIDE [Suspect]
     Active Substance: IRINOTECAN HYDROCHLORIDE
     Indication: Colon cancer
     Dosage: INIZIO TERAPIA 09/01/2024 - TERAPIA OGNI 14 GIORNI - I CICLO
     Route: 042
     Dates: start: 20240109, end: 20240109
  3. FLUOROURACIL [Suspect]
     Active Substance: FLUOROURACIL
     Indication: Colon cancer
     Dosage: 640 MG EVERY 14 DAYS, CYCLE 1
     Route: 040
     Dates: start: 20240109, end: 20240109
  4. FLUOROURACIL [Suspect]
     Active Substance: FLUOROURACIL
     Indication: Colon cancer
     Dosage: 3800 MG EVERY 14 DAYS, CYCLE 1, CONTINUOUS INFUSION OVER 46 HOURS
     Route: 042
     Dates: start: 20240109, end: 20240111
  5. LEVOLEUCOVORIN [Concomitant]
     Active Substance: LEVOLEUCOVORIN
     Dosage: UNK

REACTIONS (2)
  - Abdominal pain [Recovering/Resolving]
  - Faecaloma [Recovering/Resolving]

NARRATIVE: CASE EVENT DATE: 20240113
